FAERS Safety Report 9201661 (Version 1)
Quarter: 2013Q1

REPORT INFORMATION
  Report Type: Spontaneous
  Country: TR (occurrence: None)
  Receive Date: 20130327
  Receipt Date: 20130327
  Transmission Date: 20140127
  Serious: Yes (Hospitalization)
  Sender: FDA-Public Use
  Company Number: B0877719A

PATIENT
  Age: 3 Year
  Sex: Male

DRUGS (1)
  1. VENTOLIN [Suspect]
     Indication: PRODUCT USED FOR UNKNOWN INDICATION
     Route: 048

REACTIONS (7)
  - Toxicity to various agents [None]
  - Pyrexia [None]
  - Respiratory rate increased [None]
  - Agitation [None]
  - Blood glucose increased [None]
  - Sinus tachycardia [None]
  - Leukocytosis [None]
